FAERS Safety Report 17009104 (Version 1)
Quarter: 2019Q4

REPORT INFORMATION
  Report Type: Spontaneous
  Country: US (occurrence: US)
  Receive Date: 20191108
  Receipt Date: 20191108
  Transmission Date: 20200122
  Serious: Yes (Hospitalization)
  Sender: FDA-Public Use
  Company Number: US-MYLANLABS-2019M1105959

PATIENT
  Age: 61 Year
  Sex: Male

DRUGS (1)
  1. LEVOFLOXACIN. [Suspect]
     Active Substance: LEVOFLOXACIN
     Indication: ANTIBIOTIC THERAPY
     Dosage: THE MAN WAS PRESCRIBED LEVOFLOXACIN 750MG EVERY OTHER DAY, BUT HE WAS TAKING IT DAILY
     Route: 065

REACTIONS (2)
  - Myoclonus [Recovered/Resolved]
  - Inappropriate schedule of product administration [Unknown]
